FAERS Safety Report 14998009 (Version 1)
Quarter: 2018Q2

REPORT INFORMATION
  Report Type: Spontaneous
  Country: US (occurrence: US)
  Receive Date: 20180611
  Receipt Date: 20180611
  Transmission Date: 20180711
  Serious: No
  Sender: FDA-Public Use
  Company Number: US-BAYER-2018-108075

PATIENT
  Age: 47 Year
  Sex: Female

DRUGS (2)
  1. ORTHOVISC [Concomitant]
     Active Substance: HYALURONIC ACID
     Dosage: UNK
     Route: 030
     Dates: start: 201806
  2. SKYLA [Suspect]
     Active Substance: LEVONORGESTREL
     Dosage: 14 MCG/24HR, CONT
     Route: 015
     Dates: start: 2018

REACTIONS (1)
  - Alopecia [Not Recovered/Not Resolved]

NARRATIVE: CASE EVENT DATE: 2018
